FAERS Safety Report 6989715-9 (Version None)
Quarter: 2010Q3

REPORT INFORMATION
  Report Type: 
  Country: None (occurrence: None)
  Receive Date: 20100916
  Receipt Date: 20100223
  Transmission Date: 20110219
  Serious: Yes (Other)
  Sender: FDA-Public Use
  Company Number: US-PFIZER INC-2010023886

PATIENT
  Sex: Female
  Weight: 68.027 kg

DRUGS (3)
  1. LYRICA [Suspect]
     Indication: SURGERY
     Dosage: 125 MG, 3X/DAY
     Route: 048
     Dates: start: 20070101
  2. LYRICA [Suspect]
     Dosage: 75 MG, 3X/DAY
     Route: 048
  3. LYRICA [Suspect]
     Dosage: 50 MG, 3X/DAY
     Route: 048
     Dates: end: 20100101

REACTIONS (2)
  - RESTLESS LEGS SYNDROME [None]
  - TREMOR [None]
